FAERS Safety Report 21656401 (Version 2)
Quarter: 2023Q1

REPORT INFORMATION
  Report Type: Spontaneous
  Country: GB (occurrence: GB)
  Receive Date: 20221129
  Receipt Date: 20230221
  Transmission Date: 20230418
  Serious: Yes (Other)
  Sender: FDA-Public Use
  Company Number: GB-MYLANLABS-2022M1025395

PATIENT
  Age: 45 Year
  Sex: Male

DRUGS (2)
  1. CLOZARIL [Suspect]
     Active Substance: CLOZAPINE
     Indication: Schizophrenia
     Dosage: UNK
     Route: 048
     Dates: start: 20220404, end: 20220407
  2. CLOZARIL [Suspect]
     Active Substance: CLOZAPINE
     Dosage: UNK (START DATE:26-OCT-2022)
     Route: 048
     Dates: end: 20230212

REACTIONS (18)
  - Diabetes mellitus [Unknown]
  - Red cell distribution width decreased [Recovered/Resolved]
  - Blood folate decreased [Recovered/Resolved]
  - Vitamin B12 decreased [Recovered/Resolved]
  - Glycosylated haemoglobin increased [Recovering/Resolving]
  - Lymphocyte count increased [Recovered/Resolved]
  - Alanine aminotransferase increased [Unknown]
  - Neutrophil count decreased [Not Recovered/Not Resolved]
  - White blood cell count decreased [Recovered/Resolved]
  - Lymphocyte count decreased [Unknown]
  - Mean cell haemoglobin decreased [Recovering/Resolving]
  - Platelet count decreased [Unknown]
  - Blood phosphorus abnormal [Unknown]
  - Blood triglycerides abnormal [Unknown]
  - High density lipoprotein [Unknown]
  - Blood prolactin abnormal [Unknown]
  - Poor venous access [Unknown]
  - Product use issue [Unknown]

NARRATIVE: CASE EVENT DATE: 20220406
